FAERS Safety Report 5295428-4 (Version None)
Quarter: 2007Q2

REPORT INFORMATION
  Report Type: 
  Country: None (occurrence: None)
  Receive Date: 20070412
  Receipt Date: 20070404
  Transmission Date: 20071010
  Serious: Yes (Hospitalization)
  Sender: FDA-Public Use
  Company Number: US-GENENTECH-238912

PATIENT
  Sex: Female

DRUGS (7)
  1. AVASTIN [Suspect]
     Indication: MACULAR DEGENERATION
     Dosage: UNK, 1/MONTH
     Route: 031
     Dates: start: 20060301
  2. AVASTIN [Suspect]
     Dosage: UNK, Q6W
     Route: 031
  3. ACTONEL [Concomitant]
     Indication: DRUG USE FOR UNKNOWN INDICATION
     Route: 065
  4. NIFEDIPINE [Concomitant]
     Indication: HYPERTENSION
     Dosage: 30 MG, UNK
     Route: 065
  5. WATER PILL (UNK INGREDIENTS) [Concomitant]
     Indication: DRUG USE FOR UNKNOWN INDICATION
     Route: 065
  6. PROPRANOLOL [Concomitant]
     Indication: DRUG USE FOR UNKNOWN INDICATION
  7. MULTI-VITAMIN [Concomitant]
     Indication: DRUG USE FOR UNKNOWN INDICATION

REACTIONS (1)
  - THROMBOSIS [None]
